FAERS Safety Report 8576664-8 (Version None)
Quarter: 2012Q3

REPORT INFORMATION
  Report Type: 
  Country: None (occurrence: None)
  Receive Date: 20120807
  Receipt Date: 20120731
  Transmission Date: 20120928
  Serious: Yes (Hospitalization)
  Sender: FDA-Public Use
  Company Number: GB-PFIZER INC-2012163564

PATIENT
  Sex: Female

DRUGS (1)
  1. EPIPEN [Suspect]
     Dosage: UNK
     Dates: start: 20120628

REACTIONS (2)
  - DEVICE FAILURE [None]
  - INJECTION SITE INJURY [None]
